FAERS Safety Report 7232720-8 (Version None)
Quarter: 2011Q1

REPORT INFORMATION
  Report Type: 
  Country: None (occurrence: None)
  Receive Date: 20110107
  Receipt Date: 20101227
  Transmission Date: 20110831
  Serious: Yes (Hospitalization, Disabling)
  Sender: FDA-Public Use
  Company Number: 024630

PATIENT
  Age: 48 Year
  Sex: Female

DRUGS (2)
  1. LAMOTRIGINE [Concomitant]
  2. KEPPRA [Suspect]
     Dosage: 1500 MG ORAL
     Route: 048
     Dates: start: 20090831

REACTIONS (1)
  - HEADACHE [None]
